FAERS Safety Report 7454549-8 (Version None)
Quarter: 2011Q2

REPORT INFORMATION
  Report Type: 
  Country: None (occurrence: None)
  Receive Date: 20110503
  Receipt Date: 20110426
  Transmission Date: 20111010
  Serious: Yes (Death)
  Sender: FDA-Public Use
  Company Number: CA-ELI_LILLY_AND_COMPANY-CA201104007399

PATIENT
  Age: 84 Year
  Sex: Male

DRUGS (1)
  1. ADCIRCA [Suspect]
     Dosage: 40 MG, QD

REACTIONS (1)
  - DEATH [None]
